FAERS Safety Report 6195977-0 (Version None)
Quarter: 2009Q2

REPORT INFORMATION
  Report Type: 
  Country: None (occurrence: None)
  Receive Date: 20090520
  Receipt Date: 20090514
  Transmission Date: 20091009
  Serious: Yes (Other)
  Sender: FDA-Public Use
  Company Number: PHHY2009PT18784

PATIENT
  Sex: Female

DRUGS (3)
  1. ACLASTA [Suspect]
     Route: 042
  2. VASTAREL [Concomitant]
  3. VOLTAREN [Concomitant]

REACTIONS (8)
  - ATRIOVENTRICULAR BLOCK FIRST DEGREE [None]
  - BLOOD PRESSURE FLUCTUATION [None]
  - HYPERGLYCAEMIA [None]
  - HYPOKALAEMIA [None]
  - MALAISE [None]
  - PRESYNCOPE [None]
  - SOMNOLENCE [None]
  - VOMITING [None]
